FAERS Safety Report 16008349 (Version 2)
Quarter: 2019Q1

REPORT INFORMATION
  Report Type: Report from Study
  Country: CA (occurrence: CA)
  Receive Date: 20190225
  Receipt Date: 20190306
  Transmission Date: 20190418
  Serious: No
  Sender: FDA-Public Use
  Company Number: CA-ROCHE-2271087

PATIENT
  Age: 29 Year
  Sex: Female

DRUGS (3)
  1. OCREVUS [Suspect]
     Active Substance: OCRELIZUMAB
     Indication: RELAPSING-REMITTING MULTIPLE SCLEROSIS
     Dosage: 300 MG AT DAY 0 AND 14.
     Route: 042
  2. OCREVUS [Suspect]
     Active Substance: OCRELIZUMAB
     Route: 042
  3. VYVANSE [Concomitant]
     Active Substance: LISDEXAMFETAMINE DIMESYLATE
     Route: 065

REACTIONS (3)
  - Nasopharyngitis [Recovering/Resolving]
  - Cough [Recovering/Resolving]
  - Infusion related reaction [Unknown]

NARRATIVE: CASE EVENT DATE: 20190216
